FAERS Safety Report 19770518 (Version 3)
Quarter: 2021Q4

REPORT INFORMATION
  Report Type: Other
  Country: AT (occurrence: AT)
  Receive Date: 20210901
  Receipt Date: 20211003
  Transmission Date: 20220303
  Serious: Yes (Other)
  Sender: FDA-Public Use
  Company Number: AT-CELLTRION INC.-2021AT011554

PATIENT

DRUGS (2)
  1. RITUXIMAB [Suspect]
     Active Substance: RITUXIMAB
     Indication: Diffuse large B-cell lymphoma
     Dosage: CYCLES OF R-MINI-CHOP
     Route: 042
     Dates: start: 202008, end: 202101
  2. POLIVY [Suspect]
     Active Substance: POLATUZUMAB VEDOTIN-PIIQ
     Indication: Diffuse large B-cell lymphoma
     Dosage: CYCLES OF R-MINI-CHOP
     Route: 042

REACTIONS (5)
  - Urinary retention [Unknown]
  - Disease progression [Unknown]
  - Acute kidney injury [Unknown]
  - Escherichia bacteraemia [Unknown]
  - Infection [Unknown]

NARRATIVE: CASE EVENT DATE: 20201001
